FAERS Safety Report 9162593 (Version 2)
Quarter: 2013Q1

REPORT INFORMATION
  Report Type: Spontaneous
  Country: US (occurrence: None)
  Receive Date: 20130206
  Receipt Date: 20130212
  Transmission Date: 20140127
  Serious: Yes (Other)
  Sender: FDA-Public Use
  Company Number: AUR-APL-2013-01062

PATIENT
  Age: 67 Year
  Sex: Male

DRUGS (9)
  1. SERTRALINE (SERTRALINE) (SERTRALINE) [Suspect]
     Indication: PRODUCT USED FOR UNKNOWN INDICATION
     Dosage: 25 MG EVERY MORNING
  2. AMLODIPINE (AMLODIPINE) [Suspect]
     Indication: PRODUCT USED FOR UNKNOWN INDICATION
     Dosage: 10 MG, 1 D, UNK
  3. DULOXETINE [Suspect]
     Indication: PRODUCT USED FOR UNKNOWN INDICATION
  4. ROSUVASTATIN (ROSUVASTATIN) [Suspect]
     Indication: PRODUCT USED FOR UNKNOWN INDICATION
  5. ALPRAZOLAM (ALPRAZOLAM) [Concomitant]
  6. METOPROLOL (METOPROLOL) [Concomitant]
  7. HYDROCHLOROTHIAZIDE/TRIAMTERENE [Concomitant]
  8. METFORMIN (METFORMIN) [Concomitant]
  9. SITAGLIPTIN (SITAGLIPTIN) [Concomitant]

REACTIONS (3)
  - Gynaecomastia [None]
  - Breast tenderness [None]
  - Hypogonadism male [None]
